FAERS Safety Report 16608740 (Version 1)
Quarter: 2019Q3

REPORT INFORMATION
  Report Type: Spontaneous
  Country: FR (occurrence: FR)
  Receive Date: 20190722
  Receipt Date: 20190722
  Transmission Date: 20191004
  Serious: Yes (Hospitalization)
  Sender: FDA-Public Use
  Company Number: FR-PFIZER INC-2019304632

PATIENT
  Age: 33 Year
  Sex: Female
  Weight: 84 kg

DRUGS (5)
  1. TOPLEXIL [GUAIFENESIN;OXOMEMAZINE;PARACETAMOL;SODIUM BENZOATE] [Suspect]
     Active Substance: ACETAMINOPHEN\GUAIFENESIN\OXOMEMAZINE\SODIUM BENZOATE
     Indication: INFLUENZA LIKE ILLNESS
     Dosage: UNK
     Route: 048
     Dates: start: 20150223, end: 20150226
  2. VITAMINE C [Suspect]
     Active Substance: ASCORBIC ACID
     Indication: INFLUENZA LIKE ILLNESS
     Dosage: UNK
     Route: 048
     Dates: start: 20150223, end: 20150226
  3. IBUPROFEN. [Suspect]
     Active Substance: IBUPROFEN
     Indication: INFLUENZA LIKE ILLNESS
     Dosage: UNK
     Route: 048
     Dates: start: 20150223, end: 20150226
  4. HELICIDINE [Suspect]
     Active Substance: ESCARGOT
     Indication: INFLUENZA LIKE ILLNESS
     Dosage: UNK
     Route: 048
     Dates: start: 20150223, end: 20150226
  5. DOLIPRANE [Concomitant]
     Active Substance: ACETAMINOPHEN
     Indication: INFLUENZA LIKE ILLNESS
     Dosage: UNK
     Route: 048
     Dates: start: 20150223, end: 20150226

REACTIONS (1)
  - Stevens-Johnson syndrome [Recovered/Resolved]

NARRATIVE: CASE EVENT DATE: 20150227
